FAERS Safety Report 14328225 (Version 1)
Quarter: 2017Q4

REPORT INFORMATION
  Report Type: Spontaneous
  Country: DE (occurrence: DE)
  Receive Date: 20171227
  Receipt Date: 20171227
  Transmission Date: 20180321
  Serious: Yes (Other)
  Sender: FDA-Public Use
  Company Number: DE-BAYER-2017-244677

PATIENT
  Age: 74 Year
  Sex: Female

DRUGS (2)
  1. ACETYLSALICYLIC ACID({=100 MG) [Suspect]
     Active Substance: ASPIRIN
     Indication: PLATELET AGGREGATION INHIBITION
     Dosage: POSTOPERATIVE DUAL PLATELET AGGREGATION INHIBITION WITH CLOPIDOGREL;
     Route: 048
  2. CLOPIDOGREL [Concomitant]
     Active Substance: CLOPIDOGREL BISULFATE
     Indication: PLATELET AGGREGATION INHIBITION
     Dosage: POSTOPERATIVE DUAL PLATELET AGGREGATION INHIBITION WITH ASS;
     Route: 048

REACTIONS (1)
  - Atrial fibrillation [None]
